FAERS Safety Report 25226303 (Version 1)
Quarter: 2025Q2

REPORT INFORMATION
  Report Type: Spontaneous
  Country: US (occurrence: US)
  Receive Date: 20250422
  Receipt Date: 20250422
  Transmission Date: 20250717
  Serious: Yes (Other)
  Sender: INFORLIFE
  Company Number: US-INFO-20250070

PATIENT
  Sex: Male
  Weight: 86 kg

DRUGS (13)
  1. NOREPINEPHRINE [Suspect]
     Active Substance: NOREPINEPHRINE
     Indication: Hypotension
     Route: 042
     Dates: start: 20250402, end: 20250402
  2. NOREPINEPHRINE [Suspect]
     Active Substance: NOREPINEPHRINE
     Indication: Hypotension
     Dates: start: 20250402, end: 20250402
  3. ALBUMIN HUMAN [Concomitant]
     Active Substance: ALBUMIN HUMAN
  4. NEXIUM [Concomitant]
     Active Substance: ESOMEPRAZOLE MAGNESIUM
     Dosage: DAILY VIA GTUBE
  5. PROSCAR [Concomitant]
     Active Substance: FINASTERIDE
     Dosage: DAILY VIA GTUBE
  6. INSULIN LISPRO [Concomitant]
     Active Substance: INSULIN LISPRO
     Dosage: ()
  7. LACTULOSE [Concomitant]
     Active Substance: LACTULOSE
  8. MIDODRINE [Concomitant]
     Active Substance: MIDODRINE
     Dosage: EVERY 8 HOUR VIA GTUBE
  9. KCL [Concomitant]
     Active Substance: POTASSIUM CHLORIDE
  10. XIFAXAN [Concomitant]
     Active Substance: RIFAXIMIN
  11. SPIRONOLACTONE [Concomitant]
     Active Substance: SPIRONOLACTONE
  12. THIAMINE [Concomitant]
     Active Substance: THIAMINE
  13. VITAMIN K [Concomitant]
     Active Substance: PHYTONADIONE

REACTIONS (1)
  - Heart rate decreased [Recovered/Resolved]

NARRATIVE: CASE EVENT DATE: 20250402
